FAERS Safety Report 10572611 (Version 1)
Quarter: 2014Q4

REPORT INFORMATION
  Report Type: Spontaneous
  Country: US (occurrence: None)
  Receive Date: 20141107
  Receipt Date: 20141107
  Transmission Date: 20150529
  Serious: Yes (Death, Hospitalization)
  Sender: FDA-Public Use
  Company Number: None

PATIENT
  Age: 68 Year
  Sex: Male
  Weight: 112.2 kg

DRUGS (2)
  1. DAUNORUBICIN [Suspect]
     Active Substance: DAUNORUBICIN
     Dates: end: 20141011
  2. CYTARABINE. [Suspect]
     Active Substance: CYTARABINE
     Dates: end: 20141015

REACTIONS (14)
  - Atrial fibrillation [None]
  - Confusional state [None]
  - Hypotension [None]
  - Abdominal pain [None]
  - Haematochezia [None]
  - Acute kidney injury [None]
  - Disorientation [None]
  - Ileus [None]
  - Thrombocytopenia [None]
  - General physical health deterioration [None]
  - Jaundice [None]
  - Melaena [None]
  - Gastrointestinal mucosal disorder [None]
  - Agitation [None]

NARRATIVE: CASE EVENT DATE: 20141025
